FAERS Safety Report 6159655-6 (Version None)
Quarter: 2009Q2

REPORT INFORMATION
  Report Type: 
  Country: None (occurrence: None)
  Receive Date: 20090420
  Receipt Date: 20090417
  Transmission Date: 20091009
  Serious: Yes (Death)
  Sender: FDA-Public Use
  Company Number: GB-B.I. PHARMACEUTICALS,INC./RIDGEFIELD-2009-UK-00043UK

PATIENT
  Age: 79 Year
  Sex: Male

DRUGS (8)
  1. SPIRIVA [Suspect]
     Indication: CHRONIC OBSTRUCTIVE PULMONARY DISEASE
     Route: 055
  2. SERETIDE [Concomitant]
     Indication: CHRONIC OBSTRUCTIVE PULMONARY DISEASE
     Dosage: TWICE DAILY
  3. SALBUTAMOL [Concomitant]
     Dosage: NEBULISER 4 TIMES DAILY
  4. OXYGEN [Concomitant]
     Dosage: 16 HOURS DAILY
  5. METHADONE [Concomitant]
  6. VENTOLIN [Concomitant]
  7. COMBIVENT [Concomitant]
  8. SPARFLOXACIN [Concomitant]

REACTIONS (2)
  - CHRONIC OBSTRUCTIVE PULMONARY DISEASE [None]
  - DISEASE PROGRESSION [None]
